FAERS Safety Report 15292422 (Version 2)
Quarter: 2018Q3

REPORT INFORMATION
  Report Type: Spontaneous
  Country: NL (occurrence: NL)
  Receive Date: 20180818
  Receipt Date: 20180822
  Transmission Date: 20181010
  Serious: Yes (Life-Threatening, Hospitalization, Other)
  Sender: FDA-Public Use
  Company Number: NL-AUROBINDO-AUR-APL-2018-041452

PATIENT
  Age: 68 Year
  Sex: Female

DRUGS (6)
  1. ADRENALIN                          /00003901/ [Concomitant]
     Active Substance: EPINEPHRINE
     Indication: PRODUCT USED FOR UNKNOWN INDICATION
  2. CARBASALATE CALCIUM [Concomitant]
     Active Substance: CARBASPIRIN
     Indication: PRODUCT USED FOR UNKNOWN INDICATION
     Dosage: UNK
     Route: 065
  3. METFORMIN [Suspect]
     Active Substance: METFORMIN HYDROCHLORIDE
     Indication: TYPE 2 DIABETES MELLITUS
     Route: 065
  4. METOPROLOL. [Concomitant]
     Active Substance: METOPROLOL
     Indication: PRODUCT USED FOR UNKNOWN INDICATION
     Dosage: UNK
     Route: 065
  5. CAPTOPRIL. [Concomitant]
     Active Substance: CAPTOPRIL
     Dosage: UNK
     Route: 065
  6. SODIUM BICARBONATE. [Concomitant]
     Active Substance: SODIUM BICARBONATE
     Indication: BLOOD PH DECREASED

REACTIONS (22)
  - Blood pressure immeasurable [Unknown]
  - Hyperkalaemia [Unknown]
  - Lactic acidosis [Recovering/Resolving]
  - Depressed level of consciousness [Unknown]
  - Dizziness [Unknown]
  - Hypothermia [Unknown]
  - Chromaturia [Unknown]
  - Toxicity to various agents [Recovering/Resolving]
  - Vomiting [Unknown]
  - Metabolic acidosis [Unknown]
  - Drug level increased [Unknown]
  - Anuria [Unknown]
  - Abdominal pain [Unknown]
  - Multiple organ dysfunction syndrome [Unknown]
  - Renal failure [Unknown]
  - Blood creatinine increased [Unknown]
  - Nausea [Unknown]
  - Malaise [Unknown]
  - Fatigue [Unknown]
  - Shock [Unknown]
  - Unresponsive to stimuli [Unknown]
  - Bradycardia [Unknown]
